FAERS Safety Report 6335638-8 (Version None)
Quarter: 2009Q3

REPORT INFORMATION
  Report Type: 
  Country: None (occurrence: None)
  Receive Date: 20090826
  Receipt Date: 20090818
  Transmission Date: 20100115
  Serious: Yes (Life-Threatening, Hospitalization)
  Sender: FDA-Public Use
  Company Number: GXKR2009GB09317

PATIENT
  Age: 25 Year
  Sex: Female

DRUGS (4)
  1. ONDANSETRON [Suspect]
     Indication: PROCEDURAL NAUSEA
     Dosage: 4 MG, TOTAL, INTRAVENOUS
     Route: 042
     Dates: start: 20090702, end: 20090702
  2. ONDANSETRON [Suspect]
     Indication: PROCEDURAL VOMITING
     Dosage: 4 MG, TOTAL, INTRAVENOUS
     Route: 042
     Dates: start: 20090702, end: 20090702
  3. FENTANYL-100 [Concomitant]
  4. PROPOFOL [Concomitant]

REACTIONS (3)
  - ANAPHYLACTIC REACTION [None]
  - CONVULSION [None]
  - OXYGEN SATURATION DECREASED [None]
